FAERS Safety Report 5423142-0 (Version None)
Quarter: 2007Q3

REPORT INFORMATION
  Report Type: 
  Country: None (occurrence: None)
  Receive Date: 20070821
  Receipt Date: 20070808
  Transmission Date: 20080115
  Serious: Yes (Hospitalization)
  Sender: FDA-Public Use
  Company Number: B0475523A

PATIENT
  Age: 71 Year
  Sex: Female

DRUGS (8)
  1. LITHIUM CARBONATE [Suspect]
     Indication: BIPOLAR DISORDER
  2. DIGOXIN [Suspect]
     Dates: start: 20051201
  3. DICLOFENAC SUPPOSITORY (GENERIC) (DICLOFENAC) [Suspect]
     Indication: BACK PAIN
     Dosage: 100 MG SEE DOSAGE TEXT
     Dates: start: 20050801
  4. CARBAMAZEPINE [Suspect]
     Dates: start: 20051201
  5. FUROSEMIDE [Suspect]
     Dates: start: 20051201
  6. NAPROXEN [Suspect]
     Indication: BACK PAIN
     Dosage: 500 MG SEE DOSAGE TEXT
     Dates: start: 20050801
  7. METHOTRIMEPRAZINE [Concomitant]
  8. BIPERIDEN HYDROCHLORIDE TAB [Concomitant]

REACTIONS (27)
  - ALTERED STATE OF CONSCIOUSNESS [None]
  - ANAEMIA [None]
  - ASTHENIA [None]
  - BLOOD SODIUM DECREASED [None]
  - BRADYCARDIA [None]
  - CEREBROVASCULAR DISORDER [None]
  - COMA [None]
  - CONDITION AGGRAVATED [None]
  - DEHYDRATION [None]
  - ECCHYMOSIS [None]
  - FLUID INTAKE REDUCED [None]
  - GENERAL PHYSICAL HEALTH DETERIORATION [None]
  - HYPOREFLEXIA [None]
  - HYPOTONIA [None]
  - MEMORY IMPAIRMENT [None]
  - MENTAL DISORDER [None]
  - MOVEMENT DISORDER [None]
  - MYOCLONUS [None]
  - NO THERAPEUTIC RESPONSE [None]
  - ORAL INTAKE REDUCED [None]
  - POSITIVE ROMBERGISM [None]
  - RALES [None]
  - SOMNOLENCE [None]
  - THERAPEUTIC AGENT TOXICITY [None]
  - URINARY TRACT INFECTION [None]
  - VASCULAR INSUFFICIENCY [None]
  - VERTIGO [None]
